FAERS Safety Report 4869707-6 (Version None)
Quarter: 2005Q4

REPORT INFORMATION
  Report Type: 
  Country: None (occurrence: None)
  Receive Date: 20051223
  Receipt Date: 20051209
  Transmission Date: 20060501
  Serious: Yes (Hospitalization)
  Sender: FDA-Public Use
  Company Number: 2005P1000421

PATIENT
  Age: 77 Year
  Sex: Male
  Weight: 84 kg

DRUGS (10)
  1. RETEPLASE (RETEPLASE) [Suspect]
     Indication: ACUTE MYOCARDIAL INFARCTION
     Dosage: IV
     Route: 042
     Dates: start: 20050325
  2. ABCIXIMAB (ABCIXIMAB) [Suspect]
     Indication: ACUTE MYOCARDIAL INFARCTION
     Dosage: IV
     Route: 042
     Dates: start: 20050325
  3. ASPIRIN [Concomitant]
  4. BISOPROLOL [Concomitant]
  5. ATORVASTATIN [Concomitant]
  6. INSULIN [Concomitant]
  7. ALACERPRIL [Concomitant]
  8. CLOPIDOGREL [Concomitant]
  9. BETA BLOCKING AGENTS [Concomitant]
  10. CALCIUM CHANNEL BLOCKERS [Concomitant]

REACTIONS (3)
  - CORONARY ARTERY DISEASE [None]
  - CORONARY ARTERY OCCLUSION [None]
  - PROCEDURAL COMPLICATION [None]
